FAERS Safety Report 4872112-X (Version None)
Quarter: 2005Q4

REPORT INFORMATION
  Report Type: 
  Country: None (occurrence: None)
  Receive Date: 20051230
  Receipt Date: 20051219
  Transmission Date: 20060501
  Serious: Yes (Other)
  Sender: FDA-Public Use
  Company Number: 2005170407

PATIENT
  Age: 68 Year
  Sex: Female
  Weight: 122.4712 kg

DRUGS (2)
  1. LIPITOR [Suspect]
     Indication: BLOOD CHOLESTEROL INCREASED
     Dosage: 40 MG (40 MG, 1 IN 1 D), ORAL
     Route: 048
  2. ALLOPURINOL [Concomitant]

REACTIONS (6)
  - ARTHROPATHY [None]
  - BREAST SWELLING [None]
  - BREAST TENDERNESS [None]
  - HYPERTROPHY BREAST [None]
  - PROSTATE CANCER [None]
  - SPINAL COLUMN STENOSIS [None]
